FAERS Safety Report 11723633 (Version 3)
Quarter: 2016Q1

REPORT INFORMATION
  Report Type: Report from Study
  Country: US (occurrence: US)
  Receive Date: 20151111
  Receipt Date: 20160229
  Transmission Date: 20160525
  Serious: No
  Sender: FDA-Public Use
  Company Number: PHEH2015US023246

PATIENT
  Sex: Female
  Weight: 108.84 kg

DRUGS (1)
  1. GILENYA [Suspect]
     Active Substance: FINGOLIMOD HYDROCHLORIDE
     Indication: MULTIPLE SCLEROSIS
     Dosage: 0.5 MG, QD
     Route: 048
     Dates: start: 20150814

REACTIONS (3)
  - Contusion [Not Recovered/Not Resolved]
  - White blood cell count decreased [Unknown]
  - Memory impairment [Not Recovered/Not Resolved]
